FAERS Safety Report 20755817 (Version 2)
Quarter: 2022Q3

REPORT INFORMATION
  Report Type: Report from Study
  Country: US (occurrence: US)
  Receive Date: 20220427
  Receipt Date: 20220825
  Transmission Date: 20221027
  Serious: No
  Sender: FDA-Public Use
  Company Number: US-NOVARTISTESTPH-NVSC2022US096621

PATIENT
  Sex: Female

DRUGS (1)
  1. XIIDRA [Suspect]
     Active Substance: LIFITEGRAST
     Indication: Diabetic retinopathy
     Dosage: 5 ML, BID
     Route: 047
     Dates: start: 20211104

REACTIONS (2)
  - Dry eye [Recovering/Resolving]
  - Visual impairment [Unknown]
